FAERS Safety Report 8492472-0 (Version None)
Quarter: 2012Q3

REPORT INFORMATION
  Report Type: 
  Country: None (occurrence: None)
  Receive Date: 20120706
  Receipt Date: 20120621
  Transmission Date: 20120928
  Serious: Yes (Hospitalization)
  Sender: FDA-Public Use
  Company Number: JP-ROCHE-1057911

PATIENT
  Sex: Male

DRUGS (8)
  1. INVIRASE [Suspect]
     Indication: HIV INFECTION
     Route: 048
     Dates: start: 20061026
  2. DIDANOSINE [Suspect]
     Indication: HIV INFECTION
     Route: 048
     Dates: start: 20061026
  3. LOPINAVIR AND RITONAVIR [Suspect]
     Indication: HIV INFECTION
     Route: 048
     Dates: end: 20060921
  4. LOPINAVIR AND RITONAVIR [Suspect]
     Route: 048
     Dates: start: 20061026
  5. ZIAGEN [Concomitant]
     Indication: HIV INFECTION
     Route: 048
     Dates: end: 20060921
  6. RALTEGRAVIR [Suspect]
     Indication: HIV INFECTION
     Route: 048
  7. HALCION [Concomitant]
     Indication: INSOMNIA
     Route: 048
     Dates: end: 20100823
  8. VIREAD [Concomitant]
     Indication: HIV INFECTION
     Route: 048
     Dates: end: 20060921

REACTIONS (2)
  - CARDIAC FAILURE [None]
  - HEPATIC FUNCTION ABNORMAL [None]
